FAERS Safety Report 5448513-8 (Version None)
Quarter: 2007Q3

REPORT INFORMATION
  Report Type: 
  Country: None (occurrence: None)
  Receive Date: 20070911
  Receipt Date: 20070810
  Transmission Date: 20080115
  Serious: Yes (Other)
  Sender: FDA-Public Use
  Company Number: US-AVENTIS-200713393US

PATIENT
  Sex: Female
  Weight: 150 kg

DRUGS (31)
  1. APIDRA [Suspect]
     Dosage: DOSE: SLIDING SCALE
     Dates: start: 20060501
  2. OPTICLIK GREY [Suspect]
     Dates: start: 20060501
  3. LANTUS [Suspect]
     Dates: start: 20060401
  4. LANTUS [Suspect]
  5. OPTICLIK (INSULIN INJECTION PEN) [Suspect]
     Dates: start: 20060401
  6. PREDNISONE TAB [Suspect]
     Indication: ASTHMA
  7. PREDNISONE TAB [Suspect]
  8. SINGULAIR [Concomitant]
  9. PROTONIX [Concomitant]
  10. NITROGLYCERIN [Concomitant]
     Route: 060
  11. VALIUM [Concomitant]
  12. EPIPEN [Concomitant]
  13. VICODIN [Concomitant]
     Dosage: DOSE: UNK
  14. PULMICORT [Concomitant]
     Dosage: DOSE: 0.5MG/2ML
  15. DYRENIUM [Concomitant]
  16. CROMOLYN SODIUM [Concomitant]
     Dosage: DOSE: UNK
  17. FORADIL [Concomitant]
  18. VOLMAX                             /00139501/ [Concomitant]
  19. MYCELEX [Concomitant]
  20. METHOTREXATE [Concomitant]
  21. ZOFRAN [Concomitant]
  22. CARDIZEM [Concomitant]
  23. FOLIC ACID [Concomitant]
     Dosage: DOSE: UNK
  24. FORTEO [Concomitant]
  25. LIDOCAINE 2% NEBULIZER [Concomitant]
     Dosage: DOSE: LIDOCAINE 2% VIA NEBULIZER
  26. DONNATAL [Concomitant]
     Dosage: DOSE: UNK
  27. LEVOXYL [Concomitant]
  28. BENADRYL [Concomitant]
     Dosage: DOSE: UNK
  29. XOPENEX [Concomitant]
     Dosage: DOSE: UNK
  30. SODIUM CHLORIDE [Concomitant]
     Dosage: DOSE: UNK
  31. TYLENOL (CAPLET) [Concomitant]

REACTIONS (2)
  - GLAUCOMA [None]
  - HYPERGLYCAEMIA [None]
